FAERS Safety Report 9969977 (Version 1)
Quarter: 2014Q1

REPORT INFORMATION
  Report Type: Spontaneous
  Country: KR (occurrence: KR)
  Receive Date: 20140306
  Receipt Date: 20140306
  Transmission Date: 20141002
  Serious: Yes (Death)
  Sender: FDA-Public Use
  Company Number: KR-MYLANLABS-2014S1004227

PATIENT
  Age: 62 Year
  Sex: Female

DRUGS (3)
  1. CICLOSPORIN [Suspect]
     Indication: PROPHYLAXIS AGAINST GRAFT VERSUS HOST DISEASE
     Dosage: 3 MG/KG/DAY
     Route: 042
  2. METHOTREXATE [Suspect]
     Indication: PROPHYLAXIS AGAINST GRAFT VERSUS HOST DISEASE
     Dosage: 15 MG/M2 ON D1; 10MG/M2 ON D3, 6 + 11
     Route: 042
  3. METHOTREXATE [Suspect]
     Indication: OFF LABEL USE
     Dosage: 15 MG/M2 ON D1; 10MG/M2 ON D3, 6 + 11
     Route: 042

REACTIONS (3)
  - BK virus infection [Not Recovered/Not Resolved]
  - Encephalitis [Not Recovered/Not Resolved]
  - Pneumonia aspiration [Fatal]
